FAERS Safety Report 5683024-6 (Version None)
Quarter: 2008Q1

REPORT INFORMATION
  Report Type: 
  Country: None (occurrence: None)
  Receive Date: 20080327
  Receipt Date: 20080324
  Transmission Date: 20080703
  Serious: Yes (Hospitalization)
  Sender: FDA-Public Use
  Company Number: JP-BRISTOL-MYERS SQUIBB COMPANY-14127062

PATIENT
  Sex: Male

DRUGS (2)
  1. TAXOL [Suspect]
     Indication: RESPIRATORY DISORDER
     Route: 041
  2. PARAPLATIN [Suspect]
     Indication: RESPIRATORY DISORDER
     Route: 041

REACTIONS (1)
  - GASTROINTESTINAL NECROSIS [None]
